FAERS Safety Report 21152359 (Version 2)
Quarter: 2023Q4

REPORT INFORMATION
  Report Type: Spontaneous
  Country: US (occurrence: US)
  Receive Date: 20220730
  Receipt Date: 20231011
  Transmission Date: 20240110
  Serious: No
  Sender: FDA-Public Use
  Company Number: US-SA-SAC20220721001694

PATIENT
  Age: 69 Year
  Sex: Male
  Weight: 110 kg

DRUGS (2)
  1. JEVTANA [Suspect]
     Active Substance: CABAZITAXEL
     Indication: Prostate cancer
     Dosage: 60 MG, Q6W
     Route: 043
     Dates: start: 20210913
  2. JEVTANA [Suspect]
     Active Substance: CABAZITAXEL
     Dosage: 60 MG/ML QOW
     Route: 043
     Dates: start: 20220720

REACTIONS (1)
  - Weight increased [Unknown]

NARRATIVE: CASE EVENT DATE: 20220720
